FAERS Safety Report 4876500-7 (Version None)
Quarter: 2005Q4

REPORT INFORMATION
  Report Type: 
  Country: None (occurrence: None)
  Receive Date: 20051206
  Receipt Date: 20050811
  Transmission Date: 20060501
  Serious: No
  Sender: FDA-Public Use
  Company Number: USA0507102321

PATIENT
  Age: 60 Year
  Sex: Female

DRUGS (6)
  1. CYMBALTA [Suspect]
     Indication: MAJOR DEPRESSION
     Dosage: 90 MG DAY
     Dates: start: 20050501, end: 20050629
  2. CITALOPRAM HYDROBROMIDE [Concomitant]
  3. LORAZEPAM [Concomitant]
  4. FLEXERIL [Concomitant]
  5. OXYCONTIN [Concomitant]
  6. WARFARIN [Concomitant]

REACTIONS (1)
  - HYPERTENSION [None]
